FAERS Safety Report 7988395-3 (Version None)
Quarter: 2011Q4

REPORT INFORMATION
  Report Type: 
  Country: None (occurrence: None)
  Receive Date: 20111216
  Receipt Date: 20111205
  Transmission Date: 20120403
  Serious: Yes (Hospitalization)
  Sender: FDA-Public Use
  Company Number: JP-WATSON-2011-09191

PATIENT
  Sex: Male

DRUGS (6)
  1. WARKMIN [Concomitant]
     Indication: PRODUCT USED FOR UNKNOWN INDICATION
     Dosage: 0.1 MCG, DAILY
     Route: 048
     Dates: end: 20110602
  2. TECIPUL [Concomitant]
     Indication: DYSTHYMIC DISORDER
     Dosage: 6 MG, DAILY
     Route: 048
     Dates: end: 20110602
  3. RABEPRAZOLE SODIUM [Concomitant]
     Indication: GASTROOESOPHAGEAL REFLUX DISEASE
     Dosage: 10 MG, DAILY
     Route: 048
     Dates: end: 20110602
  4. RAPAFLO [Suspect]
     Indication: DYSURIA
     Dosage: 4 MG, DAILY
     Route: 048
     Dates: start: 20110519, end: 20110602
  5. TOUCHRON [Concomitant]
     Indication: PRODUCT USED FOR UNKNOWN INDICATION
     Dosage: TAKEN AS NEEDED: 10CM X 14CM/ DAY
     Route: 062
     Dates: end: 20110602
  6. FERROMIA                           /00023520/ [Concomitant]
     Indication: ANAEMIA
     Dosage: 50 MG, DAILY
     Route: 048
     Dates: end: 20110602

REACTIONS (1)
  - LIVER DISORDER [None]
